FAERS Safety Report 7462672-7 (Version None)
Quarter: 2011Q1

REPORT INFORMATION
  Report Type: 
  Country: None (occurrence: None)
  Receive Date: 20110302
  Receipt Date: 20100823
  Transmission Date: 20110831
  Serious: Yes (Hospitalization, Other)
  Sender: FDA-Public Use
  Company Number: 163-21880-10040170

PATIENT
  Age: 77 Year
  Sex: Male

DRUGS (6)
  1. REVLIMID [Suspect]
     Indication: MULTIPLE MYELOMA
     Dosage: 10 MG, DAILY, PO, 5 MG, 1 IN 1 D, PO, 2.5 MG, PER DAY, PO
     Route: 048
     Dates: start: 20091201
  2. REVLIMID [Suspect]
     Indication: MULTIPLE MYELOMA
     Dosage: 10 MG, DAILY, PO, 5 MG, 1 IN 1 D, PO, 2.5 MG, PER DAY, PO
     Route: 048
     Dates: start: 20100217, end: 20100511
  3. REVLIMID [Suspect]
     Indication: MULTIPLE MYELOMA
     Dosage: 10 MG, DAILY, PO, 5 MG, 1 IN 1 D, PO, 2.5 MG, PER DAY, PO
     Route: 048
     Dates: start: 20100525
  4. NEUPOGEN [Concomitant]
  5. MELPHALAN HYDROCHLORIDE [Concomitant]
  6. PREDNISONE [Concomitant]

REACTIONS (6)
  - FLATULENCE [None]
  - CONSTIPATION [None]
  - DIARRHOEA [None]
  - NEUTROPHIL COUNT DECREASED [None]
  - BRONCHITIS [None]
  - BONE MARROW FAILURE [None]
